FAERS Safety Report 23189759 (Version 1)
Quarter: 2023Q4

REPORT INFORMATION
  Report Type: Other
  Country: JP (occurrence: None)
  Receive Date: 20231116
  Receipt Date: 20231116
  Transmission Date: 20240110
  Serious: Yes (Other)
  Sender: FDA-Public Use
  Company Number: JP-ROCHE-3457404

PATIENT

DRUGS (3)
  1. TOCILIZUMAB [Suspect]
     Active Substance: TOCILIZUMAB
     Indication: Rheumatoid arthritis
     Route: 042
  2. TOCILIZUMAB [Suspect]
     Active Substance: TOCILIZUMAB
     Indication: Rheumatoid arthritis
     Route: 058
  3. SARILUMAB [Suspect]
     Active Substance: SARILUMAB
     Indication: Rheumatoid arthritis
     Route: 058

REACTIONS (10)
  - Lung neoplasm malignant [Unknown]
  - Colon cancer [Unknown]
  - Lymphoma [Unknown]
  - Breast cancer [Unknown]
  - Pancreatic carcinoma [Unknown]
  - Ovarian cancer [Unknown]
  - Aortic dissection [Unknown]
  - Acute myocardial infarction [Unknown]
  - Cardiac failure acute [Unknown]
  - Prostate cancer [Unknown]
